FAERS Safety Report 17363216 (Version 4)
Quarter: 2020Q2

REPORT INFORMATION
  Report Type: Report from Study
  Country: US (occurrence: US)
  Receive Date: 20200203
  Receipt Date: 20200625
  Transmission Date: 20200713
  Serious: Yes (Hospitalization, Other)
  Sender: FDA-Public Use
  Company Number: US-ACTELION-A-NJ2019-188551

PATIENT
  Age: 79 Year
  Sex: Male
  Weight: 70.3 kg

DRUGS (5)
  1. VELETRI [Suspect]
     Active Substance: EPOPROSTENOL
     Indication: PULMONARY HYPERTENSION
     Dosage: 37 NG/KG, PER MIN
     Route: 042
  2. VELETRI [Suspect]
     Active Substance: EPOPROSTENOL
     Dosage: 12 NG/KG, PER MIN
     Route: 042
  3. VELETRI [Suspect]
     Active Substance: EPOPROSTENOL
     Dosage: 25 NG/KG, PER MIN
     Route: 042
  4. VELETRI [Suspect]
     Active Substance: EPOPROSTENOL
     Dosage: 35 NG/KG, PER MIN
     Route: 042
  5. VELETRI [Suspect]
     Active Substance: EPOPROSTENOL
     Dosage: 10 NG/KG, PER MIN
     Route: 042

REACTIONS (29)
  - Nausea [Unknown]
  - Device alarm issue [Unknown]
  - Drug eruption [Unknown]
  - Dry skin [Unknown]
  - Spleen disorder [Unknown]
  - Product container issue [Unknown]
  - Neck pain [Not Recovered/Not Resolved]
  - Oedema peripheral [Not Recovered/Not Resolved]
  - Blood blister [Unknown]
  - Dyspnoea at rest [Unknown]
  - Headache [Not Recovered/Not Resolved]
  - Flushing [Not Recovered/Not Resolved]
  - Device occlusion [Unknown]
  - Abdominal distension [Not Recovered/Not Resolved]
  - Heart rate irregular [Unknown]
  - Fluid retention [Unknown]
  - Dyspnoea exertional [Unknown]
  - Liver disorder [Unknown]
  - Pain in jaw [Unknown]
  - Tachycardia [Unknown]
  - Catheter management [Unknown]
  - Skin disorder [Unknown]
  - Skin exfoliation [Unknown]
  - Rash [Unknown]
  - Catheter site haemorrhage [Unknown]
  - Therapeutic embolisation [Unknown]
  - Dyspnoea [Unknown]
  - Eczema [Unknown]
  - Catheterisation cardiac [Unknown]

NARRATIVE: CASE EVENT DATE: 20190318
